FAERS Safety Report 6136252-X (Version None)
Quarter: 2009Q1

REPORT INFORMATION
  Report Type: 
  Country: None (occurrence: None)
  Receive Date: 20090330
  Receipt Date: 20090320
  Transmission Date: 20090719
  Serious: Yes (Hospitalization)
  Sender: FDA-Public Use
  Company Number: US-BIOGENIDEC-2008BI001868

PATIENT
  Age: 58 Year
  Sex: Female
  Weight: 65 kg

DRUGS (2)
  1. AVONEX [Suspect]
     Indication: MULTIPLE SCLEROSIS
     Route: 030
     Dates: start: 20030827
  2. AVONEX [Suspect]
     Route: 030
     Dates: start: 20070701

REACTIONS (11)
  - CONTUSION [None]
  - CONVULSION [None]
  - EXOSTOSIS [None]
  - INJECTION SITE HAEMATOMA [None]
  - INJECTION SITE RASH [None]
  - MIGRAINE [None]
  - MULTIPLE SCLEROSIS RELAPSE [None]
  - PAIN [None]
  - ROTATOR CUFF REPAIR [None]
  - TOOTH FRACTURE [None]
  - WEIGHT INCREASED [None]
